FAERS Safety Report 12390625 (Version 1)
Quarter: 2016Q2

REPORT INFORMATION
  Report Type: Spontaneous
  Country: GB (occurrence: GB)
  Receive Date: 20160520
  Receipt Date: 20160520
  Transmission Date: 20160815
  Serious: Yes (Hospitalization)
  Sender: FDA-Public Use
  Company Number: GB-TEVA-659912ACC

PATIENT
  Age: 26 Year
  Sex: Female
  Weight: 52.16 kg

DRUGS (1)
  1. CLARITHROMYCIN. [Suspect]
     Active Substance: CLARITHROMYCIN
     Indication: EAR PAIN
     Route: 048
     Dates: start: 20160406, end: 20160407

REACTIONS (16)
  - Feeling cold [Recovered/Resolved]
  - Asthenia [Not Recovered/Not Resolved]
  - Chest discomfort [Recovering/Resolving]
  - Fatigue [Not Recovered/Not Resolved]
  - Pallor [Recovered/Resolved]
  - Insomnia [Recovered/Resolved with Sequelae]
  - Peripheral coldness [Recovered/Resolved]
  - Night sweats [Recovered/Resolved with Sequelae]
  - Irritability [Not Recovered/Not Resolved]
  - Anxiety [Recovering/Resolving]
  - Diarrhoea [Recovered/Resolved]
  - Cardiac flutter [Recovered/Resolved]
  - Abnormal dreams [Not Recovered/Not Resolved]
  - Nausea [Recovered/Resolved]
  - Dyspnoea [Recovering/Resolving]
  - Dyspnoea [Recovered/Resolved with Sequelae]

NARRATIVE: CASE EVENT DATE: 20160406
